FAERS Safety Report 22087460 (Version 1)
Quarter: 2023Q1

REPORT INFORMATION
  Report Type: Spontaneous
  Country: SK (occurrence: SK)
  Receive Date: 20230313
  Receipt Date: 20230313
  Transmission Date: 20230417
  Serious: Yes (Hospitalization, Other)
  Sender: FDA-Public Use
  Company Number: None

PATIENT
  Age: 44 Year
  Sex: Male

DRUGS (9)
  1. MEROPENEM [Suspect]
     Active Substance: MEROPENEM
     Indication: Evidence based treatment
     Dosage: 1 GRAM, Q8H
     Route: 042
     Dates: start: 2021, end: 2021
  2. VANCOMYCIN [Suspect]
     Active Substance: VANCOMYCIN
     Indication: Evidence based treatment
     Dosage: 1 GRAM, BID
     Route: 042
     Dates: start: 2021, end: 2021
  3. CIPROFLOXACIN [Suspect]
     Active Substance: CIPROFLOXACIN
     Indication: Candida infection
     Dosage: 400 MILLIGRAM, BID
     Route: 042
     Dates: start: 2021, end: 2021
  4. CIPROFLOXACIN [Suspect]
     Active Substance: CIPROFLOXACIN
     Indication: Acinetobacter infection
  5. CIPROFLOXACIN [Suspect]
     Active Substance: CIPROFLOXACIN
     Indication: Enterococcal infection
  6. CLINDAMYCIN [Suspect]
     Active Substance: CLINDAMYCIN
     Indication: Prophylaxis
     Dosage: 600 MILLIGRAM, BID, REDUCED DOSE
     Route: 042
     Dates: start: 2021, end: 2021
  7. FLUCONAZOLE [Suspect]
     Active Substance: FLUCONAZOLE
     Indication: Candida infection
     Dosage: 150 MILLIGRAM, QD
     Route: 048
     Dates: start: 2021, end: 2021
  8. FLUCONAZOLE [Suspect]
     Active Substance: FLUCONAZOLE
     Indication: Enterococcal infection
  9. FLUCONAZOLE [Suspect]
     Active Substance: FLUCONAZOLE
     Indication: Acinetobacter infection

REACTIONS (6)
  - Vanishing bile duct syndrome [None]
  - Drug-induced liver injury [None]
  - Cholestatic liver injury [None]
  - Normochromic normocytic anaemia [None]
  - Leukocytosis [None]
  - Thrombocytosis [None]

NARRATIVE: CASE EVENT DATE: 20211101
